FAERS Safety Report 4293244-3 (Version None)
Quarter: 2004Q1

REPORT INFORMATION
  Report Type: 
  Country: None (occurrence: None)
  Receive Date: 20040126
  Receipt Date: 20031111
  Transmission Date: 20041129
  Serious: No
  Sender: FDA-Public Use
  Company Number: USA031152251

PATIENT
  Age: 79 Year
  Sex: Female

DRUGS (4)
  1. FORTEO [Suspect]
     Indication: OSTEOPOROSIS
     Dates: start: 20030715
  2. ALPRAZOLAM [Concomitant]
  3. THEO-DUR(THEOHYLLINE) [Concomitant]
  4. PROPRANOLOL [Concomitant]

REACTIONS (1)
  - ALOPECIA [None]
